FAERS Safety Report 13383729 (Version 1)
Quarter: 2017Q1

REPORT INFORMATION
  Report Type: Spontaneous
  Country: US (occurrence: US)
  Receive Date: 20170329
  Receipt Date: 20170329
  Transmission Date: 20170429
  Serious: No
  Sender: FDA-Public Use
  Company Number: US-ELI_LILLY_AND_COMPANY-US201608006056

PATIENT
  Sex: Male

DRUGS (1)
  1. CYMBALTA [Suspect]
     Active Substance: DULOXETINE HYDROCHLORIDE
     Indication: BACK PAIN
     Dosage: UNK UNK, UNKNOWN
     Route: 065
     Dates: start: 201404, end: 201506

REACTIONS (17)
  - Sensory disturbance [Unknown]
  - Nausea [Unknown]
  - Fatigue [Unknown]
  - Drug dose omission [Recovered/Resolved]
  - Diarrhoea [Unknown]
  - Agitation [Unknown]
  - Drug withdrawal syndrome [Unknown]
  - Speech disorder [Unknown]
  - Insomnia [Unknown]
  - Paraesthesia [Recovered/Resolved]
  - Irritability [Unknown]
  - Dizziness [Unknown]
  - Lethargy [Unknown]
  - Dysphoria [Unknown]
  - Headache [Unknown]
  - Tinnitus [Unknown]
  - Feeling abnormal [Recovered/Resolved]

NARRATIVE: CASE EVENT DATE: 2015
